FAERS Safety Report 9893711 (Version 2)
Quarter: 2014Q3

REPORT INFORMATION
  Report Type: Report from Study
  Country: PT (occurrence: PT)
  Receive Date: 20140213
  Receipt Date: 20140908
  Transmission Date: 20150326
  Serious: Yes (Other)
  Sender: FDA-Public Use
  Company Number: PHHY2014PT017064

PATIENT
  Age: 41 Year
  Sex: Male

DRUGS (1)
  1. EXTAVIA [Suspect]
     Active Substance: INTERFERON BETA-1B
     Indication: MULTIPLE SCLEROSIS
     Dosage: 250 UG/ML, EVERY OTHER DAY
     Route: 058
     Dates: start: 20130423

REACTIONS (3)
  - Wrong technique in drug usage process [Unknown]
  - Abdominal pain [Recovered/Resolved]
  - Cyst [Recovered/Resolved]

NARRATIVE: CASE EVENT DATE: 20140118
